FAERS Safety Report 19641589 (Version 1)
Quarter: 2021Q3

REPORT INFORMATION
  Report Type: Report from Study
  Country: GB (occurrence: GB)
  Receive Date: 20210730
  Receipt Date: 20210730
  Transmission Date: 20211014
  Serious: Yes (Other)
  Sender: FDA-Public Use
  Company Number: GB-PFIZER INC-202100934260

PATIENT
  Age: 61 Year
  Sex: Female

DRUGS (3)
  1. METHOTREXATE SODIUM. [Suspect]
     Active Substance: METHOTREXATE SODIUM
     Dosage: UNKNOWN
     Route: 065
  2. BENEPALI [Suspect]
     Active Substance: ETANERCEPT
     Indication: RHEUMATOID ARTHRITIS
     Dosage: 50 MG, WEEKLY
     Route: 058
     Dates: start: 20210607
  3. PREDNISOLONE. [Concomitant]
     Active Substance: PREDNISOLONE
     Dosage: UNKNOWN
     Route: 065

REACTIONS (16)
  - Cystitis [Unknown]
  - Stress [Unknown]
  - Alopecia [Unknown]
  - Blood pressure increased [Unknown]
  - Initial insomnia [Unknown]
  - Kidney infection [Unknown]
  - Arthralgia [Unknown]
  - Therapeutic product effect decreased [Unknown]
  - Mobility decreased [Unknown]
  - Pain [Unknown]
  - Accidental exposure to product [Unknown]
  - Rash [Unknown]
  - Back pain [Unknown]
  - Pain in extremity [Unknown]
  - Exposure via skin contact [Unknown]
  - Heart rate increased [Unknown]
